FAERS Safety Report 21831006 (Version 1)
Quarter: 2023Q1

REPORT INFORMATION
  Report Type: Spontaneous
  Country: IT (occurrence: IT)
  Receive Date: 20230106
  Receipt Date: 20230106
  Transmission Date: 20230417
  Serious: Yes (Other)
  Sender: FDA-Public Use
  Company Number: IT-MYLANLABS-2022M1141103

PATIENT
  Age: 28 Year
  Sex: Female

DRUGS (1)
  1. ADALIMUMAB [Suspect]
     Active Substance: ADALIMUMAB
     Indication: Crohn^s disease
     Dosage: UNK; 1 FL OF 40 MG EVERY 14 DAYS
     Route: 065

REACTIONS (2)
  - Alopecia areata [Recovering/Resolving]
  - Paradoxical drug reaction [Recovering/Resolving]
